FAERS Safety Report 5240545-8 (Version None)
Quarter: 2007Q1

REPORT INFORMATION
  Report Type: 
  Country: None (occurrence: None)
  Receive Date: 20070219
  Receipt Date: 20070205
  Transmission Date: 20070707
  Serious: Yes (Hospitalization)
  Sender: FDA-Public Use
  Company Number: AU-AMGEN-US204915

PATIENT
  Sex: Female

DRUGS (5)
  1. PANITUMUMAB [Suspect]
     Indication: COLORECTAL CANCER
     Route: 042
     Dates: start: 20060913, end: 20061219
  2. FLUOROURACIL [Suspect]
     Route: 042
  3. IRINOTECAN HCL [Suspect]
     Route: 042
  4. LEUCOVORIN CALCIUM [Suspect]
     Route: 042
  5. PARACETAMOL [Concomitant]

REACTIONS (1)
  - PYELONEPHRITIS [None]
